FAERS Safety Report 5519634-6 (Version None)
Quarter: 2007Q4

REPORT INFORMATION
  Report Type: 
  Country: None (occurrence: None)
  Receive Date: 20071114
  Receipt Date: 20071030
  Transmission Date: 20080405
  Serious: Yes (Other)
  Sender: FDA-Public Use
  Company Number: 2007EN000270

PATIENT
  Age: 71 Year
  Sex: Male

DRUGS (4)
  1. OPANA ER [Suspect]
     Indication: BACK PAIN
     Dosage: 5 MG; BID;
     Dates: start: 20070904, end: 20070905
  2. LISINOPRIL [Concomitant]
  3. LASIX [Concomitant]
  4. BLOOD PRESSURE MEDICATION NOS [Concomitant]

REACTIONS (2)
  - DYSPNOEA [None]
  - PHARYNGEAL OEDEMA [None]
